FAERS Safety Report 18044130 (Version 1)
Quarter: 2020Q3

REPORT INFORMATION
  Report Type: Spontaneous
  Country: US (occurrence: US)
  Receive Date: 20200719
  Receipt Date: 20200719
  Transmission Date: 20201103
  Serious: Yes (Death, Other)
  Sender: FDA-Public Use
  Company Number: None

PATIENT
  Age: 54 Year
  Sex: Male
  Weight: 157.5 kg

DRUGS (7)
  1. ALLPURINOL [Concomitant]
     Active Substance: ALLOPURINOL
  2. GLIPIZIDE. [Concomitant]
     Active Substance: GLIPIZIDE
  3. FUROSEMIDE. [Concomitant]
     Active Substance: FUROSEMIDE
  4. LEVOFLOXACIN 500MG [Suspect]
     Active Substance: LEVOFLOXACIN
     Indication: RHINITIS
     Dosage: ?          QUANTITY:10 TABLET(S);?
     Route: 048
  5. CLONIDINE. [Concomitant]
     Active Substance: CLONIDINE
  6. LEVOFLAXIN [Concomitant]
     Active Substance: LEVOFLOXACIN
  7. HYDRALAZINE [Concomitant]
     Active Substance: HYDRALAZINE HYDROCHLORIDE

REACTIONS (3)
  - Vascular rupture [None]
  - Vein rupture [None]
  - Bone disorder [None]

NARRATIVE: CASE EVENT DATE: 20151101
